FAERS Safety Report 4827376-5 (Version None)
Quarter: 2005Q4

REPORT INFORMATION
  Report Type: 
  Country: None (occurrence: None)
  Receive Date: 20051110
  Receipt Date: 20051031
  Transmission Date: 20060501
  Serious: Yes (Hospitalization)
  Sender: FDA-Public Use
  Company Number: VE-2005-023229

PATIENT
  Age: 63 Year
  Sex: Male

DRUGS (8)
  1. MAGNEVIST [Suspect]
     Indication: ARTERIOGRAM RENAL
     Dosage: 30 ML, 1 DOSE, INTRAVENOUS
     Route: 042
     Dates: start: 20051025, end: 20051025
  2. METFORMIN HCL [Concomitant]
  3. GLYBURIDE [Concomitant]
  4. TELMISARTAN (TELMISARTAN) [Concomitant]
  5. CARVEDILOL [Concomitant]
  6. EZETROL (EZETIMIBE) [Concomitant]
  7. ZOCOR [Concomitant]
  8. INDAPAMIDE [Concomitant]

REACTIONS (6)
  - DYSPHAGIA [None]
  - DYSPNOEA [None]
  - GENITAL PRURITUS MALE [None]
  - INFUSION RELATED REACTION [None]
  - SCROTAL DISORDER [None]
  - THROAT IRRITATION [None]
